FAERS Safety Report 4531076-9 (Version None)
Quarter: 2004Q4

REPORT INFORMATION
  Report Type: 
  Country: None (occurrence: None)
  Receive Date: 20041206
  Receipt Date: 20040830
  Transmission Date: 20050328
  Serious: No
  Sender: FDA-Public Use
  Company Number: USA040876901

PATIENT
  Age: 65 Year
  Sex: Female
  Weight: 46 kg

DRUGS (2)
  1. CYMBALTA [Suspect]
     Indication: DEPRESSION
     Dosage: 30 MG/1 DAY
     Dates: start: 20040826, end: 20040829
  2. XANAX (ALPRAZOLAM DUM)) [Concomitant]

REACTIONS (5)
  - ASTHENIA [None]
  - DYSPHONIA [None]
  - FEELING ABNORMAL [None]
  - NAUSEA [None]
  - TREMOR [None]
